FAERS Safety Report 21164352 (Version 1)
Quarter: 2022Q3

REPORT INFORMATION
  Report Type: Spontaneous
  Country: US (occurrence: US)
  Receive Date: 20220803
  Receipt Date: 20220803
  Transmission Date: 20221027
  Serious: No
  Sender: FDA-Public Use
  Company Number: US-ORGANON-O2207USA002256

PATIENT
  Age: 22 Year
  Sex: Female

DRUGS (1)
  1. ETHINYL ESTRADIOL\ETONOGESTREL [Suspect]
     Active Substance: ETHINYL ESTRADIOL\ETONOGESTREL
     Dosage: 1 RING (3 RINGS)
     Route: 067
     Dates: start: 20220724

REACTIONS (1)
  - Medical device site discomfort [Unknown]

NARRATIVE: CASE EVENT DATE: 20220724
